FAERS Safety Report 4865851-8 (Version None)
Quarter: 2005Q4

REPORT INFORMATION
  Report Type: 
  Country: None (occurrence: None)
  Receive Date: 20051220
  Receipt Date: 20051207
  Transmission Date: 20060501
  Serious: Yes (Hospitalization)
  Sender: FDA-Public Use
  Company Number: 2005164606

PATIENT
  Age: 26 Year
  Sex: Female

DRUGS (4)
  1. ATARAX [Suspect]
     Indication: ILL-DEFINED DISORDER
     Dosage: 25 MG, INTRAVENOUS
     Route: 042
     Dates: start: 20031215, end: 20031216
  2. MERCAZOLE (THIAMAZOLE) [Suspect]
     Indication: ILL-DEFINED DISORDER
     Dosage: 15 MG, ORAL
     Route: 048
     Dates: start: 20031203, end: 20031219
  3. ALL OTHER THERAPEUTIC PRODUCTS (ALL OTHER THERAPEUTIC PRODUCTS) [Suspect]
     Indication: ILL-DEFINED DISORDER
  4. SOSEGON (PENTAZOCINE) [Concomitant]

REACTIONS (1)
  - LIVER DISORDER [None]
